FAERS Safety Report 14603574 (Version 1)
Quarter: 2018Q1

REPORT INFORMATION
  Report Type: Spontaneous
  Country: US (occurrence: US)
  Receive Date: 20180305
  Receipt Date: 20180305
  Transmission Date: 20180509
  Serious: Yes (Hospitalization)
  Sender: FDA-Public Use
  Company Number: None

PATIENT
  Age: 72 Year
  Sex: Female

DRUGS (1)
  1. SUTENT [Suspect]
     Active Substance: SUNITINIB MALATE
     Indication: RENAL CANCER
     Dosage: 50MG DAILY FOR 2 WEEKS THEN 1 WEEK OFF PO
     Route: 048
     Dates: start: 20170829

REACTIONS (1)
  - Seizure [None]

NARRATIVE: CASE EVENT DATE: 20180217
